FAERS Safety Report 6137041-2 (Version None)
Quarter: 2009Q1

REPORT INFORMATION
  Report Type: 
  Country: None (occurrence: None)
  Receive Date: 20090326
  Receipt Date: 20090326
  Transmission Date: 20090719
  Serious: Yes (Other)
  Sender: FDA-Public Use
  Company Number: None

PATIENT
  Age: 27 Year
  Sex: Male
  Weight: 70.3075 kg

DRUGS (1)
  1. PROPECIA [Suspect]
     Indication: ANDROGENETIC ALOPECIA
     Dosage: 1 MG DAILY PO
     Route: 048
     Dates: start: 20050101, end: 20080101

REACTIONS (12)
  - BODY TEMPERATURE DECREASED [None]
  - DARK CIRCLES UNDER EYES [None]
  - DEPRESSION [None]
  - DRY EYE [None]
  - ERECTILE DYSFUNCTION [None]
  - EXERCISE TOLERANCE DECREASED [None]
  - FATIGUE [None]
  - HYPOAESTHESIA [None]
  - LIBIDO DECREASED [None]
  - MUSCLE ATROPHY [None]
  - UNEVALUABLE EVENT [None]
  - WEIGHT DECREASED [None]
